FAERS Safety Report 15599571 (Version 2)
Quarter: 2018Q4

REPORT INFORMATION
  Report Type: Spontaneous
  Country: US (occurrence: US)
  Receive Date: 20181108
  Receipt Date: 20181213
  Transmission Date: 20190205
  Serious: Yes (Other)
  Sender: FDA-Public Use
  Company Number: US-VERTEX PHARMACEUTICALS-2017-007146

PATIENT
  Age: 8 Year
  Sex: Female

DRUGS (20)
  1. LANSOPRAZOLE. [Concomitant]
     Active Substance: LANSOPRAZOLE
  2. CYPROHEPTADINE. [Concomitant]
     Active Substance: CYPROHEPTADINE
  3. TOBRAMYCIN. [Concomitant]
     Active Substance: TOBRAMYCIN
  4. VORICONAZOLE. [Concomitant]
     Active Substance: VORICONAZOLE
  5. CIPROFLOXACIN. [Concomitant]
     Active Substance: CIPROFLOXACIN
     Dosage: UNK
     Dates: start: 201705
  6. OLOPATADINE. [Concomitant]
     Active Substance: OLOPATADINE
     Route: 045
  7. URSODIOL. [Concomitant]
     Active Substance: URSODIOL
  8. ORKAMBI [Suspect]
     Active Substance: IVACAFTOR\LUMACAFTOR
     Dosage: 2 DOSAGE FORM (100/125 MG EACH), BID
     Route: 048
     Dates: start: 20180615
  9. ZITHROMAX [Concomitant]
     Active Substance: AZITHROMYCIN DIHYDRATE
     Dosage: UNK
     Dates: start: 201703
  10. DORNASE ALFA. [Concomitant]
     Active Substance: DORNASE ALFA
  11. CAYSTON [Concomitant]
     Active Substance: AZTREONAM
  12. ORKAMBI [Suspect]
     Active Substance: IVACAFTOR\LUMACAFTOR
     Indication: CYSTIC FIBROSIS
     Dosage: 2 DOSAGE FORM (100/125 MG EACH), BID
     Route: 048
     Dates: start: 20170421, end: 20170908
  13. LEVALBUTEROL                       /01419301/ [Concomitant]
     Active Substance: LEVALBUTEROL
  14. SODIUM CHLORIDE. [Concomitant]
     Active Substance: SODIUM CHLORIDE
  15. HYPERSAL [Concomitant]
  16. CREON [Concomitant]
     Active Substance: PANCRELIPASE AMYLASE\PANCRELIPASE LIPASE\PANCRELIPASE PROTEASE
  17. FLOVENT [Concomitant]
     Active Substance: FLUTICASONE PROPIONATE
  18. LIDOCAINE. [Concomitant]
     Active Substance: LIDOCAINE
  19. MOMETASONE [Concomitant]
     Active Substance: MOMETASONE
     Route: 045
  20. CEFDINIR. [Concomitant]
     Active Substance: CEFDINIR
     Dosage: UNK
     Dates: start: 201707

REACTIONS (3)
  - Alanine aminotransferase increased [Recovered/Resolved]
  - Blood alkaline phosphatase increased [Recovered/Resolved]
  - Aspartate aminotransferase increased [Recovering/Resolving]

NARRATIVE: CASE EVENT DATE: 201707
